FAERS Safety Report 26198706 (Version 1)
Quarter: 2025Q4

REPORT INFORMATION
  Report Type: Spontaneous
  Country: US (occurrence: US)
  Receive Date: 20251225
  Receipt Date: 20251225
  Transmission Date: 20260119
  Serious: Yes (Hospitalization)
  Sender: AMGEN
  Company Number: US-AMGEN-USASP2025249709

PATIENT
  Age: 16 Year
  Sex: Male

DRUGS (1)
  1. PREDNISONE [Suspect]
     Active Substance: PREDNISONE
     Indication: Granulomatosis with polyangiitis
     Dosage: 60 MILLIGRAM, QD
     Route: 048

REACTIONS (5)
  - Myocardial infarction [Recovering/Resolving]
  - Lung opacity [Unknown]
  - Pulmonary haemorrhage [Unknown]
  - Coronary artery thrombosis [Unknown]
  - Renal failure [Unknown]
